FAERS Safety Report 5223634-3 (Version None)
Quarter: 2007Q1

REPORT INFORMATION
  Report Type: 
  Country: None (occurrence: None)
  Receive Date: 20070130
  Receipt Date: 20070119
  Transmission Date: 20070707
  Serious: Yes (Hospitalization)
  Sender: FDA-Public Use
  Company Number: PHRM2007FR00580

PATIENT
  Age: 84 Year
  Sex: Male

DRUGS (11)
  1. TEMESTA [Suspect]
     Indication: ANXIETY
     Dosage: 1 MG, QD
     Route: 048
     Dates: end: 20061021
  2. LASIX [Suspect]
     Indication: HYPERTENSION
     Dosage: 20 MG, QD
     Route: 048
     Dates: end: 20061021
  3. XATRAL [Suspect]
     Indication: ARTERITIS
     Dosage: 10 MG, QD
     Route: 048
     Dates: end: 20061021
  4. CORDARONE [Concomitant]
     Indication: ATRIAL FIBRILLATION
     Route: 048
     Dates: end: 20061021
  5. CREON [Concomitant]
     Route: 048
     Dates: end: 20061021
  6. IMODIUM [Concomitant]
     Route: 048
     Dates: end: 20061021
  7. MINISINTROM [Concomitant]
     Indication: ATRIAL FIBRILLATION
     Route: 048
     Dates: end: 20061021
  8. ALDALIX [Suspect]
     Indication: HYPERTENSION
     Dosage: 1 DF, QD
     Route: 048
     Dates: end: 20061021
  9. NISIS [Suspect]
     Indication: HYPERTENSION
     Route: 048
     Dates: end: 20061021
  10. GLIMEPIRIDE [Concomitant]
     Indication: DIABETES MELLITUS
     Route: 048
     Dates: end: 20061021
  11. AMLOR [Suspect]
     Indication: HYPERTENSION
     Dosage: 5 MG, QD
     Route: 048
     Dates: end: 20061021

REACTIONS (3)
  - FALL [None]
  - HYPONATRAEMIA [None]
  - ORTHOSTATIC HYPOTENSION [None]
